FAERS Safety Report 4748155-3 (Version None)
Quarter: 2005Q3

REPORT INFORMATION
  Report Type: 
  Country: None (occurrence: None)
  Receive Date: 20050818
  Receipt Date: 20050812
  Transmission Date: 20060218
  Serious: Yes (Congenital Anomaly)
  Sender: FDA-Public Use
  Company Number: 200517207GDDC

PATIENT
  Sex: 0

DRUGS (4)
  1. LANTUS [Suspect]
     Indication: DIABETES MELLITUS INSULIN-DEPENDENT
     Dosage: DOSE: VARIABLE; DOSE UNIT: UNITS
     Route: 064
  2. HUMALOG [Concomitant]
     Indication: DIABETES MELLITUS INSULIN-DEPENDENT
     Dosage: DOSE: VARIABLE
     Route: 064
  3. FOLIC ACID [Concomitant]
     Indication: PREGNANCY
     Route: 064
  4. AUGMENTIN '125' [Concomitant]
     Indication: URINARY TRACT INFECTION
     Route: 064
     Dates: start: 20050120

REACTIONS (6)
  - DOUBLE OUTLET RIGHT VENTRICLE [None]
  - DRUG EXPOSURE DURING PREGNANCY [None]
  - GASTROINTESTINAL MALFORMATION [None]
  - MULTIPLE CONGENITAL ABNORMALITIES [None]
  - PULMONARY VALVE STENOSIS CONGENITAL [None]
  - VENTRICULAR SEPTAL DEFECT [None]
